FAERS Safety Report 5390484-7 (Version None)
Quarter: 2007Q3

REPORT INFORMATION
  Report Type: 
  Country: None (occurrence: None)
  Receive Date: 20070712
  Receipt Date: 20070410
  Transmission Date: 20080115
  Serious: Yes (Disabling)
  Sender: FDA-Public Use
  Company Number: 6034053

PATIENT
  Age: 73 Year
  Sex: Male

DRUGS (1)
  1. PIROXICAM [Suspect]
     Indication: PSORIATIC ARTHROPATHY
     Dosage: (2 IN 1 D) ORAL
     Route: 048
     Dates: start: 19970101, end: 20070101

REACTIONS (2)
  - HEPATIC ENZYME INCREASED [None]
  - RENAL FAILURE ACUTE [None]
